FAERS Safety Report 17042671 (Version 1)
Quarter: 2019Q4

REPORT INFORMATION
  Report Type: Other
  Country: CA (occurrence: CA)
  Receive Date: 20191118
  Receipt Date: 20191118
  Transmission Date: 20200122
  Serious: Yes (Hospitalization, Other)
  Sender: FDA-Public Use
  Company Number: CA-PFIZER INC-2019490685

PATIENT
  Age: 11 Year
  Sex: Male

DRUGS (6)
  1. COSMEGEN [Suspect]
     Active Substance: DACTINOMYCIN
     Indication: RHABDOMYOSARCOMA
  2. VINCRISTINE SULFATE. [Suspect]
     Active Substance: VINCRISTINE SULFATE
     Dosage: UNK
  3. CYCLOPHOSPHAMIDE. [Suspect]
     Active Substance: CYCLOPHOSPHAMIDE
     Indication: URINARY BLADDER SARCOMA
     Dosage: UNK
  4. COSMEGEN [Suspect]
     Active Substance: DACTINOMYCIN
     Indication: URINARY BLADDER SARCOMA
     Dosage: UNK
  5. METHIMAZOLE. [Concomitant]
     Active Substance: METHIMAZOLE
     Dosage: UNK
  6. CYCLOPHOSPHAMIDE. [Suspect]
     Active Substance: CYCLOPHOSPHAMIDE
     Indication: RHABDOMYOSARCOMA

REACTIONS (2)
  - Nocturia [Recovered/Resolved]
  - Urinary bladder rupture [Recovered/Resolved]
